FAERS Safety Report 6311792-9 (Version None)
Quarter: 2009Q3

REPORT INFORMATION
  Report Type: 
  Country: None (occurrence: None)
  Receive Date: 20090817
  Receipt Date: 20090805
  Transmission Date: 20100115
  Serious: Yes (Life-Threatening, Hospitalization, Disabling, Other)
  Sender: FDA-Public Use
  Company Number: US-BAYER-US-2006-001267

PATIENT
  Age: 48 Year
  Sex: Female
  Weight: 109 kg

DRUGS (14)
  1. MAGNEVIST [Suspect]
     Indication: NUCLEAR MAGNETIC RESONANCE IMAGING BRAIN
     Dosage: TOTAL DAILY DOSE: 20 ML  UNIT DOSE: 20 ML
     Route: 042
     Dates: start: 20060119, end: 20060119
  2. AVELOX [Suspect]
     Indication: PNEUMONIA
     Route: 042
  3. AVAPRO [Concomitant]
  4. TOPROL-XL [Concomitant]
     Dosage: 100 MG/D, UNK
  5. ADVAIR HFA [Concomitant]
  6. NASONEX [Concomitant]
  7. PAROXETINE HCL [Concomitant]
  8. ALPRAZOLAM [Concomitant]
  9. NEXIUM [Concomitant]
  10. NORVASC [Concomitant]
     Dosage: 5 MG/D, UNK
  11. NABUMETONE [Concomitant]
  12. ALBUTEROL [Concomitant]
     Dosage: UNK, AS REQ'D
  13. MULTI-VITAMINS [Concomitant]
  14. PREDNISONE [Concomitant]
     Indication: ASTHMA
     Route: 048

REACTIONS (33)
  - AGITATION [None]
  - ANAPHYLACTIC REACTION [None]
  - ANAPHYLACTIC SHOCK [None]
  - ANXIETY [None]
  - BLOOD CREATINE PHOSPHOKINASE MB INCREASED [None]
  - BREATH SOUNDS ABNORMAL [None]
  - CARDIAC ARREST [None]
  - CARDIAC FAILURE CONGESTIVE [None]
  - CLOSTRIDIUM DIFFICILE COLITIS [None]
  - CONFUSIONAL STATE [None]
  - DIARRHOEA [None]
  - DYSPNOEA [None]
  - ELECTROCARDIOGRAM POOR R-WAVE PROGRESSION [None]
  - ELECTROCARDIOGRAM ST SEGMENT ABNORMAL [None]
  - EMOTIONAL DISTRESS [None]
  - ERYTHEMA [None]
  - HYPERSENSITIVITY [None]
  - HYPOTENSION [None]
  - INFECTION [None]
  - INJURY [None]
  - LARYNGOSPASM [None]
  - NAUSEA [None]
  - NEPHROLITHIASIS [None]
  - PAIN [None]
  - POST-TRAUMATIC STRESS DISORDER [None]
  - PRURITUS [None]
  - PYREXIA [None]
  - RASH GENERALISED [None]
  - SINUS TACHYCARDIA [None]
  - SUPRAVENTRICULAR TACHYCARDIA [None]
  - URTICARIA [None]
  - WHEEZING [None]
  - WHITE BLOOD CELL COUNT INCREASED [None]
